FAERS Safety Report 13472836 (Version 1)
Quarter: 2017Q2

REPORT INFORMATION
  Report Type: Spontaneous
  Country: US (occurrence: US)
  Receive Date: 20170424
  Receipt Date: 20170424
  Transmission Date: 20170830
  Serious: Yes (Other)
  Sender: FDA-Public Use
  Company Number: None

PATIENT
  Age: 72 Year
  Sex: Female
  Weight: 160 kg

DRUGS (1)
  1. BUSPIRONE [Suspect]
     Active Substance: BUSPIRONE HYDROCHLORIDE
     Indication: ANXIETY
     Route: 048
     Dates: start: 20170331, end: 20170406

REACTIONS (6)
  - Drug ineffective [None]
  - Therapeutic response shortened [None]
  - Feeling abnormal [None]
  - Anxiety [None]
  - Product substitution issue [None]
  - Therapy change [None]

NARRATIVE: CASE EVENT DATE: 20170331
